FAERS Safety Report 26162066 (Version 1)
Quarter: 2025Q4

REPORT INFORMATION
  Report Type: Spontaneous
  Country: EU (occurrence: EU)
  Receive Date: 20251216
  Receipt Date: 20251216
  Transmission Date: 20260118
  Serious: Yes (Other)
  Sender: GILEAD
  Company Number: EU-GILEAD-2025-0739587

PATIENT
  Age: 56 Year

DRUGS (3)
  1. TRODELVY [Suspect]
     Active Substance: SACITUZUMAB GOVITECAN-HZIY
     Indication: Hormone receptor positive HER2 negative breast cancer
     Dosage: 10 MG/KG
     Route: 065
     Dates: start: 20240527, end: 202506
  2. TRODELVY [Suspect]
     Active Substance: SACITUZUMAB GOVITECAN-HZIY
     Dosage: 5 MG/KG
     Route: 065
  3. GRANULOCYTE COLONY-STIMULATING FACTOR NOS [Concomitant]
     Active Substance: GRANULOCYTE COLONY-STIMULATING FACTOR NOS
     Dosage: 3 DOSAGE FORM
     Route: 065
     Dates: start: 202407, end: 202506

REACTIONS (3)
  - Neutropenia [Unknown]
  - Disease progression [Unknown]
  - Asthenia [Unknown]

NARRATIVE: CASE EVENT DATE: 20240603
